FAERS Safety Report 9412743 (Version 2)
Quarter: 2013Q3

REPORT INFORMATION
  Report Type: Spontaneous
  Country: ES (occurrence: None)
  Receive Date: 20130716
  Receipt Date: 20130724
  Transmission Date: 20140515
  Serious: Yes (Other)
  Sender: FDA-Public Use
  Company Number: ES-20130003

PATIENT
  Age: 65 Year
  Sex: Male

DRUGS (14)
  1. DOTAREM [Suspect]
     Indication: NUCLEAR MAGNETIC RESONANCE IMAGING
     Dosage: 15 ML 1 IN 1 TOTAL
     Route: 042
     Dates: start: 20120214, end: 20120214
  2. OPTIRAY 320 [Suspect]
     Indication: ARTERIOGRAM CORONARY
     Dosage: 70 ML, 1 IN 1 TOTAL
     Route: 042
     Dates: start: 20120217, end: 20120217
  3. CELLCEPT (MYCOPHENOLATE MOFETIL) (MYCOPHENOLATE MOFETIL) [Concomitant]
  4. ADVAGRAF (TACROLIMUS) (TACROLIMUS) [Concomitant]
  5. DEZACOR (DEFLAZACORT) (DEFLAZACORT) [Concomitant]
  6. PLUSVENT (FLUTICASONE SALMETEROL) (FLUTICASONE SALMETEROL) [Concomitant]
  7. ACETYLSALICYLIC ACID (ACETYLSALICYLIC ACID) (ACETYLSALICYLIC ACID) [Concomitant]
  8. JANUVIA (SITAGLIPTINE) (SITAGLIPTINE) [Concomitant]
  9. ATORVASTATIN (ATORVASTATIN) (ATORVASTATIN) [Concomitant]
  10. ALLOPURINOL (ALLOPURINOL) (ALLOPURINOL) [Concomitant]
  11. VATOUD (CLOPIDOGREL) (CLOPIDOGREL) [Concomitant]
  12. BISOPROLOL (BISOPROLOL) (BISOPROLOL) [Concomitant]
  13. AMLODIPINE (AMLODIPINE) (AMLODIPINE) [Concomitant]
  14. NITRODERM (NITROGLYCERIN) (NITROGLYCERIN) [Concomitant]

REACTIONS (2)
  - Renal failure chronic [None]
  - Haematoma [None]
